FAERS Safety Report 25302568 (Version 1)
Quarter: 2025Q2

REPORT INFORMATION
  Report Type: Report from Study
  Country: ES (occurrence: ES)
  Receive Date: 20250512
  Receipt Date: 20250512
  Transmission Date: 20250717
  Serious: Yes (Other)
  Sender: ELI LILLY AND COMPANY
  Company Number: ES-Merck Healthcare KGaA-2025017029

PATIENT
  Age: 65 Year

DRUGS (3)
  1. CETUXIMAB [Suspect]
     Active Substance: CETUXIMAB
     Indication: Squamous cell carcinoma of head and neck
     Route: 065
     Dates: start: 202209, end: 202404
  2. DOCETAXEL [Concomitant]
     Active Substance: DOCETAXEL
     Indication: Squamous cell carcinoma of head and neck
     Dates: start: 202209, end: 202212
  3. CARBOPLATIN [Concomitant]
     Active Substance: CARBOPLATIN
     Indication: Squamous cell carcinoma of head and neck
     Dates: start: 202209, end: 202212

REACTIONS (3)
  - Skin toxicity [Unknown]
  - Malignant neoplasm progression [Unknown]
  - Asthenia [Unknown]
